FAERS Safety Report 18979797 (Version 2)
Quarter: 2021Q2

REPORT INFORMATION
  Report Type: Spontaneous
  Country: US (occurrence: US)
  Receive Date: 20210308
  Receipt Date: 20210422
  Transmission Date: 20210717
  Serious: No
  Sender: FDA-Public Use
  Company Number: US-SA-2021SA076923

PATIENT
  Age: 62 Year
  Sex: Female

DRUGS (1)
  1. AUBAGIO [Suspect]
     Active Substance: TERIFLUNOMIDE
     Indication: MULTIPLE SCLEROSIS
     Dosage: 14 MG, QD
     Route: 048
     Dates: start: 20201003

REACTIONS (6)
  - Nausea [Unknown]
  - Condition aggravated [Unknown]
  - Incontinence [Unknown]
  - Contusion [Unknown]
  - Paraesthesia [Unknown]
  - Headache [Unknown]
